FAERS Safety Report 25003883 (Version 2)
Quarter: 2025Q1

REPORT INFORMATION
  Report Type: Report from Study
  Country: US (occurrence: US)
  Receive Date: 20250224
  Receipt Date: 20250325
  Transmission Date: 20250408
  Serious: Yes (Hospitalization, Other)
  Sender: ALEXION PHARMACEUTICALS
  Company Number: US-ASTRAZENECA-202502USA015746US

PATIENT

DRUGS (1)
  1. BENRALIZUMAB [Suspect]
     Active Substance: BENRALIZUMAB
     Indication: Asthma

REACTIONS (2)
  - Lung disorder [Unknown]
  - Pneumothorax [Unknown]
